FAERS Safety Report 9528685 (Version 1)
Quarter: 2013Q1

REPORT INFORMATION
  Report Type: Spontaneous
  Country: US (occurrence: None)
  Receive Date: 20130314
  Receipt Date: 20130314
  Transmission Date: 20140127
  Serious: No
  Sender: FDA-Public Use
  Company Number: 1211USA012462

PATIENT
  Age: 58 Year
  Sex: Male

DRUGS (3)
  1. PEGINTRON [Suspect]
     Indication: HEPATITIS C
     Dosage: REDIPEN
     Dates: start: 20121125
  2. RIBAVARIN [Suspect]
     Indication: HEPATITIS C
     Route: 048
     Dates: start: 20121125
  3. VICTRELIS [Suspect]
     Indication: HEPATITIS C
     Route: 048
     Dates: start: 20121223

REACTIONS (12)
  - Pain [None]
  - Pyrexia [None]
  - White blood cell count decreased [None]
  - Nausea [None]
  - Influenza like illness [None]
  - Leukopenia [None]
  - Dysgeusia [None]
  - Decreased appetite [None]
  - Headache [None]
  - Vomiting [None]
  - Fatigue [None]
  - Asthenia [None]
